FAERS Safety Report 12301076 (Version 1)
Quarter: 2016Q2

REPORT INFORMATION
  Report Type: Spontaneous
  Country: US (occurrence: US)
  Receive Date: 20160425
  Receipt Date: 20160425
  Transmission Date: 20160815
  Serious: No
  Sender: FDA-Public Use
  Company Number: US-TORRENT-00001154

PATIENT
  Age: 36 Year
  Sex: Female
  Weight: 95 kg

DRUGS (6)
  1. PRENATAL MULTI VITAMIN [Concomitant]
     Indication: ANDROGENETIC ALOPECIA
     Dosage: 1 TABLET DAILY
     Route: 048
     Dates: start: 2016
  2. WAL-SLEEP Z [Concomitant]
     Active Substance: DIPHENHYDRAMINE HYDROCHLORIDE
     Indication: INSOMNIA
     Route: 048
     Dates: start: 2016
  3. RANITIDINE. [Concomitant]
     Active Substance: RANITIDINE
     Indication: DYSPEPSIA
     Dosage: DAILY
     Route: 048
     Dates: start: 2014
  4. MIDOL COMPLETE [Concomitant]
     Active Substance: ACETAMINOPHEN\CAFFEINE\PYRILAMINE MALEATE
     Indication: MUSCLE SPASMS
     Dosage: 3 CAPLETS AS NEEDED DAILY
     Route: 048
     Dates: start: 2014
  5. METHADONE [Concomitant]
     Active Substance: METHADONE HYDROCHLORIDE
     Dosage: DAILY
     Dates: start: 2011
  6. MINOCYCLINE HYDROCHLORIDE CAPSULE [Suspect]
     Active Substance: MINOCYCLINE HYDROCHLORIDE
     Indication: ACNE
     Route: 048
     Dates: start: 20160219

REACTIONS (1)
  - Drug screen false positive [Unknown]
